FAERS Safety Report 4706851-8 (Version None)
Quarter: 2005Q3

REPORT INFORMATION
  Report Type: 
  Country: None (occurrence: None)
  Receive Date: 20050706
  Receipt Date: 20050503
  Transmission Date: 20060218
  Serious: Yes (Death, Life-Threatening, Hospitalization)
  Sender: FDA-Public Use
  Company Number: ES-MERCK-0505ESP00004

PATIENT
  Age: 60 Year
  Sex: Male

DRUGS (11)
  1. PRIMAXIN [Suspect]
     Indication: PANCREATITIS ACUTE
     Route: 042
     Dates: start: 20050415, end: 20050430
  2. PRIMAXIN [Suspect]
     Indication: PANCREATIC NECROSIS
     Route: 042
     Dates: start: 20050415, end: 20050430
  3. AMIKACIN [Concomitant]
     Indication: ANTIBIOTIC PROPHYLAXIS
     Route: 065
     Dates: start: 20050425
  4. NOREPINEPHRINE HYDROCHLORIDE [Concomitant]
     Indication: SYSTEMIC INFLAMMATORY RESPONSE SYNDROME
     Route: 042
     Dates: start: 20050417
  5. NOREPINEPHRINE HYDROCHLORIDE [Concomitant]
     Indication: MULTI-ORGAN FAILURE
     Route: 042
     Dates: start: 20050417
  6. MIDAZOLAM [Concomitant]
     Indication: SEDATION
     Route: 042
     Dates: start: 20050417
  7. INSULIN [Concomitant]
     Route: 065
  8. MORPHINE HYDROCHLORIDE [Concomitant]
     Indication: SEDATION
     Route: 042
     Dates: start: 20050417
  9. MORPHINE HYDROCHLORIDE [Concomitant]
     Indication: SYSTEMIC INFLAMMATORY RESPONSE SYNDROME
     Route: 042
     Dates: start: 20050417
  10. OMEPRAZOLE [Concomitant]
     Route: 065
  11. HYDROCORTISONE SODIUM PHOSPHATE [Concomitant]
     Indication: SYSTEMIC INFLAMMATORY RESPONSE SYNDROME
     Route: 042
     Dates: start: 20050417

REACTIONS (3)
  - GASTROINTESTINAL HAEMORRHAGE [None]
  - MULTI-ORGAN FAILURE [None]
  - PANCYTOPENIA [None]
